APPROVED DRUG PRODUCT: ERYTHROCIN
Active Ingredient: ERYTHROMYCIN LACTOBIONATE
Strength: EQ 1GM BASE/VIAL
Dosage Form/Route: INJECTABLE;INJECTION
Application: N050182 | Product #003
Applicant: HOSPIRA INC
Approved: Approved Prior to Jan 1, 1982 | RLD: No | RS: No | Type: DISCN